FAERS Safety Report 9520868 (Version 1)
Quarter: 2013Q1

REPORT INFORMATION
  Report Type: Spontaneous
  Country: US (occurrence: None)
  Receive Date: 20130305
  Receipt Date: 20130305
  Transmission Date: 20140127
  Serious: Yes (Other)
  Sender: FDA-Public Use
  Company Number: 163-21880-12012438

PATIENT
  Age: 75 Year
  Sex: Male
  Weight: 75.75 kg

DRUGS (7)
  1. REVLIMID [Suspect]
     Indication: PLASMA CELL MYELOMA
     Dosage: 1 IN 2 D
     Route: 048
     Dates: start: 201011
  2. DEXAMETHASONE (DEXAMETHASONE) [Concomitant]
  3. BUPROPION (BUPROPION) [Concomitant]
  4. DURAGESIC (FENTANYL) (POUTICE OR PATCH) [Concomitant]
  5. CALCIUM (CALCIUM) (POULTICE OR PATCH) [Concomitant]
  6. MIRALAX (MACROGOL) (POUTICE OR PATCH) [Concomitant]
  7. PRISTIQ (DENSVENLAFAXINEINSUCCINATE) (POULTICE OR PATCH) [Concomitant]

REACTIONS (1)
  - Tumour marker increased [None]
